FAERS Safety Report 8895396 (Version 1)
Quarter: 2012Q4

REPORT INFORMATION
  Report Type: 
  Country: US (occurrence: US)
  Receive Date: 20121108
  Receipt Date: 20121108
  Transmission Date: 20130627
  Serious: Yes (Death)
  Sender: FDA-Public Use
  Company Number: PHHO2012US016038

PATIENT
  Age: 70 None
  Sex: Male

DRUGS (2)
  1. ZORTRESS [Suspect]
     Indication: HEART TRANSPLANT
     Dosage: 1 mg, BID
     Route: 048
     Dates: start: 200701, end: 20121010
  2. CICLOSPORIN [Suspect]

REACTIONS (3)
  - Renal failure acute [Fatal]
  - Pneumonia [Fatal]
  - Pulmonary alveolar haemorrhage [Fatal]
